FAERS Safety Report 7477714-2 (Version None)
Quarter: 2011Q2

REPORT INFORMATION
  Report Type: 
  Country: None (occurrence: None)
  Receive Date: 20110513
  Receipt Date: 20110425
  Transmission Date: 20111010
  Serious: No
  Sender: FDA-Public Use
  Company Number: US-B.I. PHARMACEUTICALS,INC./RIDGEFIELD-2011-BP-00348BP

PATIENT
  Age: 79 Year
  Sex: Male
  Weight: 81.82 kg

DRUGS (5)
  1. PRADAXA [Suspect]
     Indication: ATRIAL FIBRILLATION
     Dosage: 300 MG
     Route: 048
     Dates: start: 20101201
  2. SIMVASTATIN [Concomitant]
     Indication: BLOOD CHOLESTEROL INCREASED
     Dosage: 40 MG
     Route: 048
     Dates: start: 20091218
  3. COUMADIN [Concomitant]
     Dosage: 5 MG
     Dates: start: 20101013
  4. PRADAXA [Suspect]
     Indication: DRUG THERAPY CHANGED
  5. CO Q10 [Concomitant]
     Dosage: 100 MG
     Dates: start: 20110127

REACTIONS (4)
  - MELAENA [None]
  - CONSTIPATION [None]
  - DIARRHOEA [None]
  - SKIN HAEMORRHAGE [None]
